FAERS Safety Report 13348070 (Version 1)
Quarter: 2017Q1

REPORT INFORMATION
  Report Type: Spontaneous
  Country: US (occurrence: US)
  Receive Date: 20170318
  Receipt Date: 20170318
  Transmission Date: 20170428
  Serious: No
  Sender: FDA-Public Use
  Company Number: US-B.I. PHARMACEUTICALS,INC./RIDGEFIELD-2017-BI-014250

PATIENT
  Age: 58 Year
  Sex: Female

DRUGS (2)
  1. JARDIANCE [Suspect]
     Active Substance: EMPAGLIFLOZIN
     Dosage: ONE TABLET DAILY;  FORM STRENGTH: 10 MG; FORMULATION: TABLET? ADMINISTRATION CORRECT? NO ?ACTION(S)
     Route: 048
     Dates: start: 20170306
  2. JARDIANCE [Suspect]
     Active Substance: EMPAGLIFLOZIN
     Indication: DIABETES MELLITUS
     Dosage: ONE TABET DAILY;  FORM STRENGTH: 25 MG; FORMULATION: TABLET? ADMINISTRATION CORRECT? NO ?ACTION(S) T
     Route: 048
     Dates: start: 20170306

REACTIONS (2)
  - Increased appetite [Unknown]
  - Dizziness [Unknown]

NARRATIVE: CASE EVENT DATE: 20170307
